FAERS Safety Report 6505117-3 (Version None)
Quarter: 2009Q4

REPORT INFORMATION
  Report Type: 
  Country: None (occurrence: None)
  Receive Date: 20091218
  Receipt Date: 20091207
  Transmission Date: 20100525
  Serious: Yes (Other)
  Sender: FDA-Public Use
  Company Number: PHHY2009AU54419

PATIENT
  Age: 23 Year
  Sex: Female

DRUGS (6)
  1. IMATINIB [Suspect]
     Indication: GASTROINTESTINAL STROMAL TUMOUR
     Dosage: 400 MG/DAY
  2. IMATINIB [Suspect]
     Dosage: UNK
  3. IMATINIB [Suspect]
     Dosage: 100 MG, QW3
  4. IMATINIB [Suspect]
     Dosage: 400 MG/DAY
  5. FILGRASTIM [Concomitant]
  6. EPOETIN ALFA [Concomitant]

REACTIONS (9)
  - CAESAREAN SECTION [None]
  - DRUG EXPOSURE BEFORE PREGNANCY [None]
  - MALIGNANT NEOPLASM PROGRESSION [None]
  - NEUTROPENIA [None]
  - NODULE [None]
  - OEDEMA PERIPHERAL [None]
  - PANCREATIC MASS [None]
  - PANCREATICODUODENECTOMY [None]
  - SURGERY [None]
